FAERS Safety Report 7341017-7 (Version None)
Quarter: 2011Q1

REPORT INFORMATION
  Report Type: 
  Country: None (occurrence: None)
  Receive Date: 20110228
  Receipt Date: 20110215
  Transmission Date: 20110831
  Serious: Yes (Other)
  Sender: FDA-Public Use
  Company Number: 20111ANT-001

PATIENT
  Age: 69 Year
  Sex: Male
  Weight: 127.0072 kg

DRUGS (9)
  1. EQUATE ULTRA MEN'S HEALTH, ASPIRIN [Concomitant]
  2. LANTISEPTIC SKIN PROTECTION) [Suspect]
     Dosage: TOPICAL; ONE TIME
     Dates: start: 20110203
  3. MEVOTHYROXINE [Concomitant]
  4. VERAPAMIL [Concomitant]
  5. MIRAPEX [Concomitant]
  6. SIMVASTATIN [Concomitant]
  7. LOSARTAN POTASSIUM [Concomitant]
  8. WARFARIN SODIUM [Concomitant]
  9. OMEPRAZOLE [Concomitant]

REACTIONS (5)
  - TENDERNESS [None]
  - PRURITUS [None]
  - OEDEMA PERIPHERAL [None]
  - HYPERSENSITIVITY [None]
  - BLISTER [None]
